FAERS Safety Report 16843042 (Version 3)
Quarter: 2022Q3

REPORT INFORMATION
  Report Type: Spontaneous
  Country: US (occurrence: US)
  Receive Date: 20190924
  Receipt Date: 20220926
  Transmission Date: 20221027
  Serious: No
  Sender: FDA-Public Use
  Company Number: US-ALLERGAN-1928579US

PATIENT
  Sex: Male

DRUGS (1)
  1. LEXAPRO [Suspect]
     Active Substance: ESCITALOPRAM OXALATE
     Indication: Product used for unknown indication
     Dosage: 2.5 MG, QOD
     Dates: start: 2013

REACTIONS (8)
  - Wrong technique in product usage process [Unknown]
  - Impaired quality of life [Unknown]
  - Chest discomfort [Unknown]
  - Expired product administered [Unknown]
  - Dry mouth [Unknown]
  - Dyspnoea [Unknown]
  - Product taste abnormal [Unknown]
  - Palpitations [Unknown]
